FAERS Safety Report 21907730 (Version 3)
Quarter: 2023Q1

REPORT INFORMATION
  Report Type: Spontaneous
  Country: US (occurrence: US)
  Receive Date: 20230125
  Receipt Date: 20230203
  Transmission Date: 20230418
  Serious: No
  Sender: FDA-Public Use
  Company Number: US-002147023-NVSC2023US016624

PATIENT
  Age: 51 Year
  Sex: Female

DRUGS (2)
  1. ARZERRA [Suspect]
     Active Substance: OFATUMUMAB
     Indication: Glomerulonephritis membranous
     Dosage: 700 MG, QW
     Route: 042
     Dates: start: 20220620, end: 20230118
  2. ARZERRA [Suspect]
     Active Substance: OFATUMUMAB
     Dosage: 40 MG, QH
     Route: 042

REACTIONS (5)
  - Serum sickness [Recovered/Resolved]
  - Throat tightness [Recovered/Resolved]
  - Urticaria [Recovered/Resolved]
  - Pyrexia [Recovered/Resolved]
  - Product use in unapproved indication [Unknown]

NARRATIVE: CASE EVENT DATE: 20230118
